FAERS Safety Report 8450461-6 (Version None)
Quarter: 2012Q2

REPORT INFORMATION
  Report Type: 
  Country: None (occurrence: None)
  Receive Date: 20120620
  Receipt Date: 20120614
  Transmission Date: 20120825
  Serious: Yes (Life-Threatening, Hospitalization)
  Sender: FDA-Public Use
  Company Number: CO-ASTELLAS-2012US005446

PATIENT
  Sex: Female

DRUGS (2)
  1. MYCOPHENOLATE MOFETIL [Concomitant]
     Indication: PRODUCT USED FOR UNKNOWN INDICATION
     Dosage: UNK
     Route: 065
  2. PROGRAF [Suspect]
     Indication: NEPHROPATHY
     Dosage: 2 MG, Q12 HOURS
     Route: 048
     Dates: start: 20120610, end: 20120611

REACTIONS (4)
  - PYREXIA [None]
  - INFECTION [None]
  - OFF LABEL USE [None]
  - ANGIOEDEMA [None]
